FAERS Safety Report 9305155 (Version 2)
Quarter: 2013Q2

REPORT INFORMATION
  Report Type: Spontaneous
  Country: FR (occurrence: None)
  Receive Date: 20130520
  Receipt Date: 20130628
  Transmission Date: 20140414
  Serious: Yes (Other)
  Sender: FDA-Public Use
  Company Number: SYM-2013-03855

PATIENT
  Age: 60 Year
  Sex: Male

DRUGS (5)
  1. FLAGYL [Suspect]
     Indication: ARTHRITIS INFECTIVE
     Route: 048
     Dates: start: 20130304, end: 20130411
  2. AMOXICILLIN (AMOXICILLIN) [Suspect]
     Indication: ARTHRITIS INFECTIVE
     Route: 048
     Dates: start: 20130304
  3. METFORMIN (METFORMIN) (METFORMIN) [Concomitant]
  4. RAMIPRIL (RAMIPRIL) (RAMIPRIL) [Concomitant]
  5. COLCHICINE (COLCHICINE) (COLCHICINE) [Concomitant]

REACTIONS (1)
  - Neuropathy peripheral [None]
